FAERS Safety Report 5321561-4 (Version None)
Quarter: 2007Q1

REPORT INFORMATION
  Report Type: 
  Country: None (occurrence: None)
  Receive Date: 20070215
  Receipt Date: 20061024
  Transmission Date: 20070707
  Serious: No
  Sender: FDA-Public Use
  Company Number: 200616280BWH

PATIENT
  Age: 68 Year
  Sex: Female

DRUGS (12)
  1. NEXAVAR [Suspect]
     Indication: RENAL CELL CARCINOMA STAGE UNSPECIFIED
     Dosage: 400MG; BID; ORAL, 400MG; QD; ORAL, 400MG; QOD; ORAL
     Route: 048
     Dates: start: 20060911, end: 20061010
  2. NEXAVAR [Suspect]
     Indication: RENAL CELL CARCINOMA STAGE UNSPECIFIED
     Dosage: 400MG; BID; ORAL, 400MG; QD; ORAL, 400MG; QOD; ORAL
     Route: 048
     Dates: start: 20061017
  3. NEXAVAR [Suspect]
     Indication: RENAL CELL CARCINOMA STAGE UNSPECIFIED
     Dosage: 400MG; BID; ORAL, 400MG; QD; ORAL, 400MG; QOD; ORAL
     Route: 048
     Dates: start: 20061031
  4. LOTREL [Concomitant]
  5. TENORMIN [Concomitant]
  6. IMDUR [Concomitant]
  7. LASIX [Concomitant]
  8. POTASSIUM SUPPLEMENT [Concomitant]
  9. PLAVIX [Concomitant]
  10. ZYRTEC [Concomitant]
  11. FISH OIL [Concomitant]
  12. MAXAIR [Concomitant]

REACTIONS (4)
  - BLISTER [None]
  - ERYTHEMA [None]
  - PERIORBITAL OEDEMA [None]
  - RASH MACULAR [None]
